FAERS Safety Report 15270242 (Version 1)
Quarter: 2018Q3

REPORT INFORMATION
  Report Type: Spontaneous
  Country: US (occurrence: US)
  Receive Date: 20180726
  Receipt Date: 20180726
  Transmission Date: 20181010
  Serious: Yes (Life-Threatening, Hospitalization)
  Sender: FDA-Public Use
  Company Number: None

PATIENT
  Age: 61 Year
  Sex: Female
  Weight: 67.05 kg

DRUGS (14)
  1. SIMIVASTATIN 20 MG [Suspect]
     Active Substance: SIMVASTATIN
     Indication: SYSTEMIC LUPUS ERYTHEMATOSUS
  2. ALODIPINE 5 MG [Suspect]
     Active Substance: AMLODIPINE BESYLATE
     Indication: BLOOD CHOLESTEROL
  3. CALCIUM [Concomitant]
     Active Substance: CALCIUM
  4. PREDNISONE 2.5 MG [Suspect]
     Active Substance: PREDNISONE
     Indication: CARDIAC DISORDER
     Route: 048
  5. VITAMIN B12 [Concomitant]
     Active Substance: CYANOCOBALAMIN
  6. POTASSIUM [Concomitant]
     Active Substance: POTASSIUM
  7. PREDNISONE 2.5 MG [Suspect]
     Active Substance: PREDNISONE
     Indication: BLOOD CHOLESTEROL ABNORMAL
     Route: 048
  8. SINGULAIR [Concomitant]
     Active Substance: MONTELUKAST SODIUM
  9. PREDNISONE 2.5 MG [Suspect]
     Active Substance: PREDNISONE
     Indication: MITRAL VALVE PROLAPSE
     Route: 048
  10. PREDNISONE 2.5 MG [Suspect]
     Active Substance: PREDNISONE
     Indication: SYSTEMIC LUPUS ERYTHEMATOSUS
     Route: 048
  11. CYCLOBENZAPRINE 5 MG [Suspect]
     Active Substance: CYCLOBENZAPRINE HYDROCHLORIDE
     Indication: HYPERTENSION
  12. FISH OIL [Concomitant]
     Active Substance: FISH OIL
  13. LISPRINOL [Concomitant]
  14. CLARINEX [Concomitant]
     Active Substance: DESLORATADINE

REACTIONS (3)
  - Seizure [None]
  - Cardiac disorder [None]
  - Product contamination [None]

NARRATIVE: CASE EVENT DATE: 20180701
